FAERS Safety Report 7965764-9 (Version None)
Quarter: 2011Q4

REPORT INFORMATION
  Report Type: 
  Country: None (occurrence: None)
  Receive Date: 20111208
  Receipt Date: 20111129
  Transmission Date: 20120403
  Serious: Yes (Other)
  Sender: FDA-Public Use
  Company Number: US-ELI_LILLY_AND_COMPANY-US201111009099

PATIENT
  Sex: Female

DRUGS (3)
  1. LANTUS [Concomitant]
     Dosage: UNK
  2. HUMALOG [Suspect]
     Dosage: UNK, PRN
     Dates: start: 19900101
  3. HUMALOG [Suspect]
     Indication: DIABETES MELLITUS
     Dosage: UNK, PRN
     Dates: start: 19900101

REACTIONS (4)
  - GAIT DISTURBANCE [None]
  - BLOOD GLUCOSE INCREASED [None]
  - RENAL FAILURE [None]
  - CARDIAC OPERATION [None]
